FAERS Safety Report 6596799-9 (Version None)
Quarter: 2010Q1

REPORT INFORMATION
  Report Type: 
  Country: None (occurrence: None)
  Receive Date: 20100219
  Receipt Date: 20100219
  Transmission Date: 20100710
  Serious: Yes (Death)
  Sender: FDA-Public Use
  Company Number: None

PATIENT
  Sex: Male
  Weight: 108 kg

DRUGS (20)
  1. SAMSCA [Suspect]
     Indication: HYPONATRAEMIA
     Dosage: 15MG X1 P.O.
     Route: 048
     Dates: start: 20091222
  2. ASPIRIN [Concomitant]
  3. ISOSORBIDE MONO. [Concomitant]
  4. CHLORTHALIDONE [Concomitant]
  5. SPIRONOLACTONE [Concomitant]
  6. BUMEX [Concomitant]
  7. POTASSIUM CHLORIDE [Concomitant]
  8. PROTONIX [Concomitant]
  9. FLOMAX [Concomitant]
  10. WARFARIN SODIUM [Concomitant]
  11. AMIODARONE [Concomitant]
  12. COQ10 [Concomitant]
  13. DIGOXIN [Concomitant]
  14. DOCUSATE SODIUM [Concomitant]
  15. IBUPROFEN [Concomitant]
  16. CLARITIN [Concomitant]
  17. NITROGLYCERIN [Concomitant]
  18. SENIOR VITAMIN [Concomitant]
  19. METALAZONE [Concomitant]
  20. NKDA [Concomitant]

REACTIONS (4)
  - CARDIO-RESPIRATORY ARREST [None]
  - FEELING ABNORMAL [None]
  - MALAISE [None]
  - POISONING [None]
